FAERS Safety Report 6148230-5 (Version None)
Quarter: 2009Q2

REPORT INFORMATION
  Report Type: 
  Country: None (occurrence: None)
  Receive Date: 20090408
  Receipt Date: 20090403
  Transmission Date: 20091009
  Serious: Yes (Hospitalization)
  Sender: FDA-Public Use
  Company Number: US-KINGPHARMUSA00001-K200900388

PATIENT
  Age: 80 Year
  Sex: Male

DRUGS (16)
  1. ALTACE [Suspect]
     Dosage: 2.5 MG, QD
     Route: 048
     Dates: end: 20080924
  2. SEROQUEL [Suspect]
     Dosage: 12.5 MG, QD
     Route: 048
     Dates: start: 20080915, end: 20080915
  3. SEROQUEL [Suspect]
     Dosage: 25 MG, QD
     Route: 048
     Dates: start: 20080916, end: 20080916
  4. SEROQUEL [Suspect]
     Dosage: 50 MG, QD
     Route: 048
     Dates: start: 20080917, end: 20080917
  5. SEROQUEL [Suspect]
     Dosage: 75 MG, QD
     Route: 048
     Dates: start: 20080918, end: 20080918
  6. SEROQUEL [Suspect]
     Dosage: 125 MG, QD
     Route: 048
     Dates: start: 20080919, end: 20080919
  7. SEROQUEL [Suspect]
     Dosage: 150 MG, QD
     Route: 048
     Dates: start: 20080920, end: 20080920
  8. SEROQUEL [Suspect]
     Dosage: 175 MG, QD
     Route: 048
     Dates: start: 20080921, end: 20080921
  9. SEROQUEL [Suspect]
     Dosage: 200 MG, QD
     Route: 048
     Dates: start: 20080922, end: 20080923
  10. BISOPROLOL FUMARATE [Suspect]
     Dosage: 1.25 MG, QD
     Route: 048
     Dates: end: 20080922
  11. MELPERON [Suspect]
     Dosage: 100 MG, PRN
     Route: 048
     Dates: start: 20080921, end: 20080921
  12. FUROSEMID                          /00032601/ [Concomitant]
     Dosage: 40 MG, UNK
     Route: 048
  13. AQUAPHOR                           /00298701/ [Concomitant]
     Dosage: 20 MG, UNK
     Route: 048
  14. ASPIRIN [Concomitant]
     Dosage: 100 MG, UNK
     Route: 048
  15. PANTOZOL                           /01263202/ [Concomitant]
     Dosage: 40 MG, UNK
     Route: 048
  16. ALLOPURINOL [Concomitant]
     Dosage: 300 MG, UNK
     Route: 048

REACTIONS (8)
  - APRAXIA [None]
  - BRAIN CONTUSION [None]
  - DRUG INTERACTION [None]
  - EXCORIATION [None]
  - FALL [None]
  - GAIT DISTURBANCE [None]
  - MANIA [None]
  - SEDATION [None]
